FAERS Safety Report 25625277 (Version 1)
Quarter: 2025Q3

REPORT INFORMATION
  Report Type: Spontaneous
  Country: IN (occurrence: IN)
  Receive Date: 20250731
  Receipt Date: 20250731
  Transmission Date: 20251021
  Serious: Yes (Other)
  Sender: ROCHE
  Company Number: IN-002147023-NVSC2025IN119434

PATIENT
  Age: 74 Year
  Sex: Female

DRUGS (1)
  1. RANIBIZUMAB [Suspect]
     Active Substance: RANIBIZUMAB
     Indication: Retinal vein occlusion
     Route: 050
     Dates: start: 20250719

REACTIONS (2)
  - Infection [Not Recovered/Not Resolved]
  - Visual acuity reduced [Unknown]

NARRATIVE: CASE EVENT DATE: 20250719
